FAERS Safety Report 4512573-9 (Version None)
Quarter: 2004Q4

REPORT INFORMATION
  Report Type: 
  Country: None (occurrence: None)
  Receive Date: 20041129
  Receipt Date: 20041119
  Transmission Date: 20050328
  Serious: Yes (Hospitalization)
  Sender: FDA-Public Use
  Company Number: IT-MERCK-0411ITA00032

PATIENT
  Age: 79 Year
  Sex: Female

DRUGS (7)
  1. ZOCOR [Suspect]
     Indication: HYPERCHOLESTEROLAEMIA
     Route: 048
     Dates: start: 20040101, end: 20041015
  2. LACIDIPINE [Concomitant]
     Route: 048
  3. PAROXETINE HYDROCHLORIDE [Concomitant]
     Route: 065
  4. ASPIRIN [Concomitant]
     Route: 048
  5. EICOSAPENTAENOIC ACID [Concomitant]
     Route: 065
  6. CANDESARTAN CILEXETIL AND HYDROCHLOROTHIAZIDE [Concomitant]
     Route: 048
  7. GLYBURIDE AND METFORMIN HYDROCHLORIDE [Concomitant]
     Route: 065

REACTIONS (3)
  - BLOOD CREATINE PHOSPHOKINASE INCREASED [None]
  - MYOGLOBIN BLOOD INCREASED [None]
  - PRURITUS [None]
